FAERS Safety Report 7270107-2 (Version None)
Quarter: 2010Q4

REPORT INFORMATION
  Report Type: 
  Country: None (occurrence: None)
  Receive Date: 20101130
  Receipt Date: 20090803
  Transmission Date: 20110411
  Serious: Yes (Hospitalization)
  Sender: FDA-Public Use
  Company Number: 2009SP017698

PATIENT
  Age: 28 Year
  Sex: Female
  Weight: 83.9154 kg

DRUGS (1)
  1. NUVARING [Suspect]
     Indication: CONTRACEPTION
     Dosage: 1 DF; VAG
     Route: 067
     Dates: start: 20060601, end: 20070810

REACTIONS (9)
  - ANXIETY [None]
  - FATIGUE [None]
  - GASTRITIS [None]
  - HYPERCHOLESTEROLAEMIA [None]
  - HYPOMENORRHOEA [None]
  - LIPOMA [None]
  - MIGRAINE [None]
  - NAUSEA [None]
  - PULMONARY EMBOLISM [None]
